FAERS Safety Report 4289951-9 (Version None)
Quarter: 2004Q1

REPORT INFORMATION
  Report Type: 
  Country: None (occurrence: None)
  Receive Date: 20040209
  Receipt Date: 20040129
  Transmission Date: 20041129
  Serious: Yes (Other)
  Sender: FDA-Public Use
  Company Number: PHEH2004US01419

PATIENT
  Age: 46 Year
  Sex: Male

DRUGS (11)
  1. GLEEVEC [Suspect]
     Indication: CHRONIC MYELOID LEUKAEMIA
     Dosage: 400 MG, QD
     Dates: start: 20021001
  2. ASPIRIN [Concomitant]
  3. SULINDAC [Concomitant]
  4. ALLOPURINOL [Concomitant]
  5. PREVACID [Concomitant]
  6. NEURONTIN [Concomitant]
  7. DIOVAN [Concomitant]
  8. TEMAZEPAM [Concomitant]
  9. AMBIEN [Concomitant]
  10. CLARITIN [Concomitant]
  11. ZOCOR [Concomitant]

REACTIONS (2)
  - CARDIAC FUNCTION TEST ABNORMAL [None]
  - CORONARY ARTERY OCCLUSION [None]
